FAERS Safety Report 12882761 (Version 1)
Quarter: 2016Q4

REPORT INFORMATION
  Report Type: Spontaneous
  Country: US (occurrence: US)
  Receive Date: 20161025
  Receipt Date: 20161025
  Transmission Date: 20170207
  Serious: No
  Sender: FDA-Public Use
  Company Number: US-BAYER-2016-195434

PATIENT
  Age: 28 Year
  Sex: Female

DRUGS (2)
  1. NIFEDIPINE. [Suspect]
     Active Substance: NIFEDIPINE
     Dosage: 10 MG, DAILY
  2. ACARBOSE. [Suspect]
     Active Substance: ACARBOSE
     Dosage: 50 MG TID BEFORE EACH MEAL

REACTIONS (2)
  - Dizziness [None]
  - Hypoglycaemia [None]
